FAERS Safety Report 20363637 (Version 1)
Quarter: 2022Q1

REPORT INFORMATION
  Report Type: Spontaneous
  Country: US (occurrence: None)
  Receive Date: 20220121
  Receipt Date: 20220121
  Transmission Date: 20220423
  Serious: No
  Sender: FDA-Public Use
  Company Number: None

PATIENT
  Age: 58 Year
  Sex: Female
  Weight: 52.8 kg

DRUGS (2)
  1. ERTAPENEM [Suspect]
     Active Substance: ERTAPENEM
     Indication: Febrile neutropenia
     Dates: start: 20220110, end: 20220113
  2. MEROPENEM [Concomitant]
     Active Substance: MEROPENEM

REACTIONS (3)
  - Rash pruritic [None]
  - Rash erythematous [None]
  - Drug hypersensitivity [None]

NARRATIVE: CASE EVENT DATE: 20220110
